FAERS Safety Report 25071882 (Version 1)
Quarter: 2025Q1

REPORT INFORMATION
  Report Type: Spontaneous
  Country: CA (occurrence: CA)
  Receive Date: 20250313
  Receipt Date: 20250313
  Transmission Date: 20250409
  Serious: Yes (Hospitalization, Other)
  Sender: TEVA
  Company Number: CA-TEVA-VS-3309017

PATIENT
  Age: 52 Year
  Sex: Female

DRUGS (6)
  1. DULOXETINE HYDROCHLORIDE [Suspect]
     Active Substance: DULOXETINE HYDROCHLORIDE
     Indication: Sciatica
     Route: 065
  2. DULOXETINE HYDROCHLORIDE [Suspect]
     Active Substance: DULOXETINE HYDROCHLORIDE
     Indication: Sciatica
     Route: 065
  3. BUDESONIDE\FORMOTEROL [Concomitant]
     Active Substance: BUDESONIDE\FORMOTEROL
     Indication: Product used for unknown indication
     Route: 055
  4. ALBUTEROL [Concomitant]
     Active Substance: ALBUTEROL
     Indication: Product used for unknown indication
     Route: 065
  5. OTRIVIN [Suspect]
     Active Substance: XYLOMETAZOLINE
     Indication: Nasal congestion
     Route: 065
  6. OTRIVIN [Suspect]
     Active Substance: XYLOMETAZOLINE
     Indication: Nasal congestion
     Dosage: OTRIVIN MEDICATED COLD + ALLERGY RELIEF SOLUTION, DOSE FORM: INTRA-NASAL
     Route: 065

REACTIONS (5)
  - Cerebral vasoconstriction [Recovered/Resolved]
  - Subarachnoid haemorrhage [Recovered/Resolved]
  - Thunderclap headache [Recovered/Resolved]
  - Hypertension [Recovered/Resolved]
  - Rebound nasal congestion [Recovered/Resolved]
